FAERS Safety Report 25598073 (Version 1)
Quarter: 2025Q3

REPORT INFORMATION
  Report Type: Spontaneous
  Country: US (occurrence: US)
  Receive Date: 20250723
  Receipt Date: 20250723
  Transmission Date: 20251021
  Serious: No
  Sender: MYLAN
  Company Number: US-MYLANLABS-2025M1059341

PATIENT
  Age: 36 Year
  Sex: Female
  Weight: 106.59 kg

DRUGS (5)
  1. FENTANYL TRANSDERMAL SYSTEM [Suspect]
     Active Substance: FENTANYL
     Indication: Fibromyalgia
     Dosage: 50 MICROGRAM, QH (PER HOUR, SWITCH PATCH EVERY 48 HOURS)
  2. FENTANYL TRANSDERMAL SYSTEM [Suspect]
     Active Substance: FENTANYL
     Indication: Complex regional pain syndrome
  3. ARMODAFINIL [Concomitant]
     Active Substance: ARMODAFINIL
     Indication: Sleep apnoea syndrome
  4. ARMODAFINIL [Concomitant]
     Active Substance: ARMODAFINIL
     Indication: Fatigue
  5. KETAMINE [Concomitant]
     Active Substance: KETAMINE

REACTIONS (10)
  - Illness [Unknown]
  - Abdominal discomfort [Unknown]
  - Application site reaction [Unknown]
  - Withdrawal syndrome [Unknown]
  - Hyperhidrosis [Unknown]
  - Product substitution issue [Unknown]
  - Wrong technique in product usage process [Unknown]
  - Product administered at inappropriate site [Unknown]
  - Drug ineffective [Unknown]
  - Product adhesion issue [Unknown]

NARRATIVE: CASE EVENT DATE: 20240101
